FAERS Safety Report 9627958 (Version 1)
Quarter: 2013Q4

REPORT INFORMATION
  Report Type: Spontaneous
  Country: DE (occurrence: DE)
  Receive Date: 20131016
  Receipt Date: 20131016
  Transmission Date: 20140711
  Serious: Yes (Hospitalization, Other)
  Sender: FDA-Public Use
  Company Number: PHHY2013DE113449

PATIENT
  Sex: Male

DRUGS (5)
  1. NALTREXONE [Suspect]
     Indication: DEPERSONALISATION
     Dosage: 150 MG, DAILY
     Dates: start: 2008
  2. VENLAFAXINE [Concomitant]
  3. CITALOPRAM [Concomitant]
  4. VALPROATE [Concomitant]
  5. OLANZAPINE [Concomitant]

REACTIONS (2)
  - Mania [Recovering/Resolving]
  - Compulsive shopping [Recovered/Resolved]
